FAERS Safety Report 9204578 (Version 1)
Quarter: 2013Q1

REPORT INFORMATION
  Report Type: Spontaneous
  Country: DK (occurrence: None)
  Receive Date: 20130329
  Receipt Date: 20130329
  Transmission Date: 20140127
  Serious: Yes (Hospitalization)
  Sender: FDA-Public Use
  Company Number: AUR-APL-2013-02547

PATIENT
  Age: 34 Year
  Sex: Male

DRUGS (2)
  1. LAMOTRIGINE [Suspect]
     Indication: DEPRESSION
     Dates: start: 20120213, end: 20120305
  2. CYMBALTA [Concomitant]

REACTIONS (6)
  - Pruritus [None]
  - Rash [None]
  - Pruritus [None]
  - Lip swelling [None]
  - Hypersensitivity [None]
  - Oropharyngeal discomfort [None]
